FAERS Safety Report 10029218 (Version 1)
Quarter: 2014Q1

REPORT INFORMATION
  Report Type: Spontaneous
  Country: CA (occurrence: CA)
  Receive Date: 20140321
  Receipt Date: 20140321
  Transmission Date: 20141002
  Serious: Yes (Hospitalization)
  Sender: FDA-Public Use
  Company Number: CA-ASTRAZENECA-2014SE19557

PATIENT
  Age: 23 Year
  Sex: Female

DRUGS (3)
  1. SEROQUEL [Suspect]
     Dosage: DAILY DOSE 700 MG
     Route: 048
  2. ACETYLSALICYLIC ACID [Suspect]
     Dosage: DAILY DOSE 25000 MG
     Route: 065
  3. PAXIL [Suspect]
     Dosage: DAILY DOSE 60 MG
     Route: 065

REACTIONS (4)
  - Asterixis [Recovered/Resolved]
  - Gait disturbance [Recovered/Resolved]
  - Respiratory alkalosis [Recovered/Resolved]
  - Tremor [Recovered/Resolved]
